FAERS Safety Report 4532105-9 (Version None)
Quarter: 2004Q4

REPORT INFORMATION
  Report Type: 
  Country: None (occurrence: None)
  Receive Date: 20041217
  Receipt Date: 20041112
  Transmission Date: 20050328
  Serious: No
  Sender: FDA-Public Use
  Company Number: 2004UW10204

PATIENT
  Age: 88 Year
  Sex: Female
  Weight: 44 kg

DRUGS (3)
  1. SEROQUEL [Suspect]
     Indication: AGGRESSION
     Dosage: 112.5 MG - 150 MG DAILY PO
     Route: 048
     Dates: start: 20040416
  2. RISPERIDONE [Concomitant]
  3. ATIVAN [Concomitant]

REACTIONS (16)
  - AGGRESSION [None]
  - AGITATION [None]
  - CONFUSIONAL STATE [None]
  - DEPRESSED LEVEL OF CONSCIOUSNESS [None]
  - DYSARTHRIA [None]
  - DYSKINESIA [None]
  - DYSPNOEA [None]
  - HYPOTENSION [None]
  - MOVEMENT DISORDER [None]
  - NERVOUS SYSTEM DISORDER [None]
  - SKIN IRRITATION [None]
  - SPEECH DISORDER [None]
  - STUPOR [None]
  - URINARY TRACT INFECTION [None]
  - VISUAL DISTURBANCE [None]
  - WEIGHT INCREASED [None]
